FAERS Safety Report 15498457 (Version 1)
Quarter: 2018Q4

REPORT INFORMATION
  Report Type: Spontaneous
  Country: TR (occurrence: TR)
  Receive Date: 20181015
  Receipt Date: 20181015
  Transmission Date: 20190205
  Serious: Yes (Other)
  Sender: FDA-Public Use
  Company Number: PHHY2018TR120338

PATIENT
  Age: 14 Year
  Sex: Male

DRUGS (3)
  1. METHYLPHENIDATE. [Suspect]
     Active Substance: METHYLPHENIDATE
     Indication: ATTENTION DEFICIT/HYPERACTIVITY DISORDER
     Dosage: 36 MG, OROS MPH 36 MG (12 H OF EXTENDED RELEASE)
     Route: 048
  2. METHYLPHENIDATE. [Suspect]
     Active Substance: METHYLPHENIDATE
     Dosage: 54 MG
     Route: 048
  3. METHYLPHENIDATE. [Suspect]
     Active Substance: METHYLPHENIDATE
     Dosage: 54 MG, BEGAN TAKING MPH SEVERAL TIMES A DAY
     Route: 048

REACTIONS (3)
  - Drug abuse [Unknown]
  - Euphoric mood [Unknown]
  - Drug tolerance [Unknown]
